FAERS Safety Report 5548355-9 (Version None)
Quarter: 2007Q4

REPORT INFORMATION
  Report Type: 
  Country: None (occurrence: None)
  Receive Date: 20071211
  Receipt Date: 20071130
  Transmission Date: 20080405
  Serious: Yes (Death)
  Sender: FDA-Public Use
  Company Number: JP-MERCK-0712USA01005

PATIENT
  Sex: Female

DRUGS (1)
  1. PRIMAXIN [Suspect]
     Indication: PNEUMONIA
     Route: 042
     Dates: start: 20071018, end: 20071021

REACTIONS (4)
  - ASPHYXIA [None]
  - HYPERCAPNIA [None]
  - MARASMUS [None]
  - SUDDEN DEATH [None]
